FAERS Safety Report 20714118 (Version 1)
Quarter: 2022Q2

REPORT INFORMATION
  Report Type: Spontaneous
  Country: CR (occurrence: CR)
  Receive Date: 20220415
  Receipt Date: 20220415
  Transmission Date: 20220721
  Serious: Yes (Other)
  Sender: FDA-Public Use
  Company Number: CR-PFIZER INC-202200540202

PATIENT
  Age: 68 Year
  Sex: Female

DRUGS (1)
  1. NORVASC [Suspect]
     Active Substance: AMLODIPINE BESYLATE
     Dosage: UNK
     Route: 048
     Dates: start: 2009, end: 2012

REACTIONS (2)
  - Myocardial infarction [Unknown]
  - Bedridden [Unknown]

NARRATIVE: CASE EVENT DATE: 20210101
